FAERS Safety Report 6828325-0 (Version None)
Quarter: 2010Q3

REPORT INFORMATION
  Report Type: 
  Country: None (occurrence: None)
  Receive Date: 20100709
  Receipt Date: 20070206
  Transmission Date: 20110219
  Serious: No
  Sender: FDA-Public Use
  Company Number: US-PFIZER INC-2007010956

PATIENT
  Sex: Female
  Weight: 65.77 kg

DRUGS (8)
  1. CHANTIX [Suspect]
     Indication: EX-TOBACCO USER
     Dosage: DAILY:EVERYDAY
     Dates: start: 20070204
  2. TOPAMAX [Concomitant]
  3. BUPROPION HCL [Concomitant]
  4. CYMBALTA [Concomitant]
  5. PROTONIX [Concomitant]
  6. HYZAAR [Concomitant]
  7. ADDERALL 10 [Concomitant]
  8. ABILIFY [Concomitant]

REACTIONS (4)
  - DECREASED APPETITE [None]
  - FATIGUE [None]
  - NAUSEA [None]
  - SOMNOLENCE [None]
